FAERS Safety Report 8999193 (Version 1)
Quarter: 2013Q1

REPORT INFORMATION
  Report Type: Spontaneous
  Country: US (occurrence: US)
  Receive Date: 20130103
  Receipt Date: 20130103
  Transmission Date: 20140127
  Serious: No
  Sender: FDA-Public Use
  Company Number: US-JNJFOC-20121214301

PATIENT
  Sex: Male
  Weight: 104.33 kg

DRUGS (15)
  1. FENTANYL [Suspect]
     Indication: BACK PAIN
     Route: 062
  2. FENTANYL [Suspect]
     Indication: BACK PAIN
     Route: 062
  3. FENTANYL [Suspect]
     Indication: BACK PAIN
     Route: 062
     Dates: start: 2012
  4. OXYCONTIN [Concomitant]
     Indication: PAIN
     Route: 048
  5. ROPINIROLE [Concomitant]
     Indication: MUSCLE SPASMS
     Route: 048
  6. LASIX [Concomitant]
     Indication: DIURETIC THERAPY
     Route: 048
  7. ENALAPRIL [Concomitant]
     Indication: BLOOD CHOLESTEROL
     Route: 048
  8. PHENOBARB [Concomitant]
     Indication: GRAND MAL CONVULSION
     Route: 048
  9. DILANTIN [Concomitant]
     Indication: GRAND MAL CONVULSION
     Route: 048
  10. PRILOSEC [Concomitant]
     Indication: GASTROOESOPHAGEAL REFLUX DISEASE
     Route: 048
  11. METOCLOPRAMIDE [Concomitant]
     Indication: GASTROOESOPHAGEAL REFLUX DISEASE
     Route: 048
  12. VALIUM [Concomitant]
     Indication: MUSCLE SPASMS
     Route: 048
  13. VALIUM [Concomitant]
     Indication: CONVULSION
     Route: 048
  14. COMBIGAN [Concomitant]
     Indication: MACULAR DEGENERATION
     Dosage: 1 DROP EACH EYE DAILY
     Route: 031
  15. LUMINAL (PHENOBARBITAL) [Concomitant]
     Indication: MACULAR DEGENERATION
     Dosage: 1 DROP EACH EYE DAILY
     Route: 031

REACTIONS (9)
  - Wrong technique in drug usage process [Not Recovered/Not Resolved]
  - Drug administered at inappropriate site [Not Recovered/Not Resolved]
  - Application site pruritus [Not Recovered/Not Resolved]
  - Application site irritation [Not Recovered/Not Resolved]
  - Dermatitis contact [Not Recovered/Not Resolved]
  - Application site urticaria [Not Recovered/Not Resolved]
  - Wrong technique in drug usage process [Not Recovered/Not Resolved]
  - Inappropriate schedule of drug administration [Not Recovered/Not Resolved]
  - Pruritus [Not Recovered/Not Resolved]
